FAERS Safety Report 25048786 (Version 1)
Quarter: 2025Q1

REPORT INFORMATION
  Report Type: Spontaneous
  Country: CA (occurrence: CA)
  Receive Date: 20250307
  Receipt Date: 20250307
  Transmission Date: 20250408
  Serious: Yes (Hospitalization)
  Sender: ROCHE
  Company Number: CA-002147023-NVSC2025CA033830

PATIENT
  Age: 54 Year
  Sex: Male

DRUGS (69)
  1. OMALIZUMAB [Suspect]
     Active Substance: OMALIZUMAB
     Indication: Asthma
     Route: 050
  2. OMALIZUMAB [Suspect]
     Active Substance: OMALIZUMAB
     Route: 050
  3. OMALIZUMAB [Suspect]
     Active Substance: OMALIZUMAB
     Route: 050
  4. OMALIZUMAB [Suspect]
     Active Substance: OMALIZUMAB
     Route: 050
  5. OMALIZUMAB [Suspect]
     Active Substance: OMALIZUMAB
     Route: 050
  6. OMALIZUMAB [Suspect]
     Active Substance: OMALIZUMAB
     Route: 050
  7. OMALIZUMAB [Suspect]
     Active Substance: OMALIZUMAB
     Route: 050
  8. OMALIZUMAB [Suspect]
     Active Substance: OMALIZUMAB
     Route: 050
  9. OMALIZUMAB [Suspect]
     Active Substance: OMALIZUMAB
     Route: 050
  10. OMALIZUMAB [Suspect]
     Active Substance: OMALIZUMAB
     Route: 050
  11. OMALIZUMAB [Suspect]
     Active Substance: OMALIZUMAB
     Route: 050
  12. OMALIZUMAB [Suspect]
     Active Substance: OMALIZUMAB
     Route: 050
  13. OMALIZUMAB [Suspect]
     Active Substance: OMALIZUMAB
     Route: 050
  14. OMALIZUMAB [Suspect]
     Active Substance: OMALIZUMAB
     Route: 050
  15. OMALIZUMAB [Suspect]
     Active Substance: OMALIZUMAB
     Route: 050
  16. OMALIZUMAB [Suspect]
     Active Substance: OMALIZUMAB
     Route: 050
  17. OMALIZUMAB [Suspect]
     Active Substance: OMALIZUMAB
     Route: 050
  18. OMALIZUMAB [Suspect]
     Active Substance: OMALIZUMAB
     Route: 050
  19. OMALIZUMAB [Suspect]
     Active Substance: OMALIZUMAB
     Route: 050
  20. OMALIZUMAB [Suspect]
     Active Substance: OMALIZUMAB
     Route: 050
  21. OMALIZUMAB [Suspect]
     Active Substance: OMALIZUMAB
     Route: 050
  22. OMALIZUMAB [Suspect]
     Active Substance: OMALIZUMAB
     Route: 050
  23. OMALIZUMAB [Suspect]
     Active Substance: OMALIZUMAB
     Route: 050
  24. OMALIZUMAB [Suspect]
     Active Substance: OMALIZUMAB
     Route: 050
  25. OMALIZUMAB [Suspect]
     Active Substance: OMALIZUMAB
     Route: 050
  26. OMALIZUMAB [Suspect]
     Active Substance: OMALIZUMAB
     Route: 050
  27. OMALIZUMAB [Suspect]
     Active Substance: OMALIZUMAB
     Route: 050
  28. OMALIZUMAB [Suspect]
     Active Substance: OMALIZUMAB
     Route: 050
  29. OMALIZUMAB [Suspect]
     Active Substance: OMALIZUMAB
     Route: 050
  30. OMALIZUMAB [Suspect]
     Active Substance: OMALIZUMAB
     Route: 050
  31. OMALIZUMAB [Suspect]
     Active Substance: OMALIZUMAB
     Route: 050
  32. OMALIZUMAB [Suspect]
     Active Substance: OMALIZUMAB
     Route: 050
  33. OMALIZUMAB [Suspect]
     Active Substance: OMALIZUMAB
     Route: 050
  34. OMALIZUMAB [Suspect]
     Active Substance: OMALIZUMAB
     Route: 050
  35. OMALIZUMAB [Suspect]
     Active Substance: OMALIZUMAB
     Route: 050
  36. OMALIZUMAB [Suspect]
     Active Substance: OMALIZUMAB
     Route: 050
  37. OMALIZUMAB [Suspect]
     Active Substance: OMALIZUMAB
     Route: 050
  38. OMALIZUMAB [Suspect]
     Active Substance: OMALIZUMAB
     Route: 050
  39. OMALIZUMAB [Suspect]
     Active Substance: OMALIZUMAB
     Route: 050
  40. OMALIZUMAB [Suspect]
     Active Substance: OMALIZUMAB
     Route: 050
  41. OMALIZUMAB [Suspect]
     Active Substance: OMALIZUMAB
     Route: 050
  42. OMALIZUMAB [Suspect]
     Active Substance: OMALIZUMAB
     Route: 050
  43. OMALIZUMAB [Suspect]
     Active Substance: OMALIZUMAB
     Route: 050
  44. OMALIZUMAB [Suspect]
     Active Substance: OMALIZUMAB
     Route: 050
  45. OMALIZUMAB [Suspect]
     Active Substance: OMALIZUMAB
     Route: 050
  46. CARBAMAZEPINE [Suspect]
     Active Substance: CARBAMAZEPINE
     Indication: Post-traumatic stress disorder
     Dosage: 400 MG, QD
     Route: 050
  47. CARBAMAZEPINE [Suspect]
     Active Substance: CARBAMAZEPINE
     Indication: Bipolar disorder
  48. VALSARTAN [Suspect]
     Active Substance: VALSARTAN
     Indication: Blood pressure abnormal
     Route: 050
  49. ABILIFY [Concomitant]
     Active Substance: ARIPIPRAZOLE
     Indication: Product used for unknown indication
     Route: 065
  50. ADVAIR HFA [Concomitant]
     Active Substance: FLUTICASONE PROPIONATE\SALMETEROL XINAFOATE
     Indication: Product used for unknown indication
     Route: 065
  51. ALVESCO [Concomitant]
     Active Substance: CICLESONIDE
     Indication: Product used for unknown indication
     Route: 065
  52. CETIRIZINE HYDROCHLORIDE [Concomitant]
     Active Substance: CETIRIZINE HYDROCHLORIDE
     Indication: Product used for unknown indication
     Route: 065
  53. CLARITIN [Concomitant]
     Active Substance: LORATADINE
     Indication: Product used for unknown indication
     Route: 065
  54. FLURAZEPAM [Concomitant]
     Active Substance: FLURAZEPAM HYDROCHLORIDE
     Indication: Product used for unknown indication
     Route: 065
  55. IRON [Concomitant]
     Active Substance: IRON
     Indication: Depression
     Route: 065
  56. MOMETASONE FUROATE [Concomitant]
     Active Substance: MOMETASONE FUROATE
     Indication: Product used for unknown indication
     Route: 065
  57. MONTELUKAST [Concomitant]
     Active Substance: MONTELUKAST
     Indication: Product used for unknown indication
     Route: 065
  58. MOXIFLOXACIN HYDROCHLORIDE [Concomitant]
     Active Substance: MOXIFLOXACIN HYDROCHLORIDE
     Indication: Product used for unknown indication
     Route: 065
  59. NAPROSYN [Concomitant]
     Active Substance: NAPROXEN
     Indication: Product used for unknown indication
     Route: 065
  60. OXAZEPAM [Concomitant]
     Active Substance: OXAZEPAM
     Indication: Product used for unknown indication
     Route: 065
  61. PAROXETINE [Concomitant]
     Active Substance: PAROXETINE
     Indication: Product used for unknown indication
     Route: 065
  62. AZITHROMYCIN ANHYDROUS [Concomitant]
     Active Substance: AZITHROMYCIN ANHYDROUS
     Indication: Product used for unknown indication
     Dosage: 250 MG, QD
     Route: 065
  63. ALBUTEROL [Concomitant]
     Active Substance: ALBUTEROL
     Indication: Product used for unknown indication
     Route: 065
  64. SILDENAFIL CITRATE [Concomitant]
     Active Substance: SILDENAFIL CITRATE
     Indication: Product used for unknown indication
     Route: 065
  65. SULFASALAZINE [Concomitant]
     Active Substance: SULFASALAZINE
     Indication: Product used for unknown indication
     Dosage: UNK, QD
     Route: 065
  66. TERBUTALINE SULFATE [Concomitant]
     Active Substance: TERBUTALINE SULFATE
     Indication: Product used for unknown indication
     Route: 065
  67. TOPIRAMATE [Concomitant]
     Active Substance: TOPIRAMATE
     Indication: Product used for unknown indication
     Route: 065
  68. VENTOLIN [Concomitant]
     Active Substance: ALBUTEROL SULFATE
     Indication: Product used for unknown indication
     Route: 065
  69. ZITHROMAX [Concomitant]
     Active Substance: AZITHROMYCIN DIHYDRATE
     Indication: Depression
     Route: 065

REACTIONS (34)
  - Chest pain [Not Recovered/Not Resolved]
  - Abdominal hernia [Not Recovered/Not Resolved]
  - Blood urine present [Not Recovered/Not Resolved]
  - Asthma [Not Recovered/Not Resolved]
  - Blood pressure increased [Not Recovered/Not Resolved]
  - Chronic pigmented purpura [Not Recovered/Not Resolved]
  - Decreased activity [Not Recovered/Not Resolved]
  - Diverticulitis [Not Recovered/Not Resolved]
  - Drug hypersensitivity [Not Recovered/Not Resolved]
  - Dyspnoea [Not Recovered/Not Resolved]
  - Fatigue [Not Recovered/Not Resolved]
  - Gastroenteritis [Not Recovered/Not Resolved]
  - Headache [Not Recovered/Not Resolved]
  - Hiatus hernia [Not Recovered/Not Resolved]
  - Illness [Not Recovered/Not Resolved]
  - Inappropriate schedule of product administration [Unknown]
  - Incorrect dose administered [Unknown]
  - Infection [Not Recovered/Not Resolved]
  - Influenza [Not Recovered/Not Resolved]
  - Inguinal hernia [Not Recovered/Not Resolved]
  - Middle insomnia [Not Recovered/Not Resolved]
  - Paraesthesia [Not Recovered/Not Resolved]
  - Pharyngitis [Not Recovered/Not Resolved]
  - Pneumonia [Not Recovered/Not Resolved]
  - Productive cough [Not Recovered/Not Resolved]
  - Pyrexia [Not Recovered/Not Resolved]
  - Sinonasal obstruction [Not Recovered/Not Resolved]
  - Sinus polyp [Not Recovered/Not Resolved]
  - Sputum discoloured [Not Recovered/Not Resolved]
  - Subcutaneous abscess [Not Recovered/Not Resolved]
  - Tachycardia [Not Recovered/Not Resolved]
  - Thyroid mass [Not Recovered/Not Resolved]
  - Wheezing [Not Recovered/Not Resolved]
  - Wrong technique in product usage process [Unknown]
